FAERS Safety Report 8121624-4 (Version None)
Quarter: 2012Q1

REPORT INFORMATION
  Report Type: 
  Country: None (occurrence: None)
  Receive Date: 20120208
  Receipt Date: 20120208
  Transmission Date: 20120608
  Serious: Yes (Hospitalization)
  Sender: FDA-Public Use
  Company Number: None

PATIENT
  Age: 84 Year
  Sex: Female
  Weight: 79.9 kg

DRUGS (1)
  1. PRADAXA [Suspect]
     Indication: ATRIAL FLUTTER
     Dosage: 150 MG
     Route: 048
     Dates: start: 20120101, end: 20120205

REACTIONS (3)
  - PERIORBITAL HAEMORRHAGE [None]
  - PNEUMONIA [None]
  - CONJUNCTIVAL HAEMORRHAGE [None]
